FAERS Safety Report 7645364-0 (Version None)
Quarter: 2011Q3

REPORT INFORMATION
  Report Type: 
  Country: None (occurrence: None)
  Receive Date: 20110729
  Receipt Date: 20110721
  Transmission Date: 20111222
  Serious: Yes (Hospitalization, Other)
  Sender: FDA-Public Use
  Company Number: US-BAYER-2010-008036

PATIENT
  Age: 26 Year
  Sex: Female
  Weight: 108 kg

DRUGS (8)
  1. LEVAQUIN [Concomitant]
     Dosage: 500 MG, UNK
  2. PROMETHAZINE [Concomitant]
  3. DOVONEX [Concomitant]
  4. IBUPROFEN [Concomitant]
     Dosage: UNK MG/ML, UNK
  5. YAZ [Suspect]
     Dosage: UNK
     Dates: start: 20040301, end: 20090630
  6. YASMIN [Suspect]
     Dosage: UNK
     Dates: start: 20040301, end: 20090630
  7. DROSPIRENONE AND ETHINYL ESTRADIOL [Suspect]
     Dosage: UNK
     Dates: start: 20040301, end: 20090630
  8. HYDROCODONE BITARTRATE AND ACETAMINOPHEN [Concomitant]

REACTIONS (5)
  - PAIN IN EXTREMITY [None]
  - CHOLECYSTITIS [None]
  - CHOLELITHIASIS [None]
  - PAIN [None]
  - GALLBLADDER DISORDER [None]
